FAERS Safety Report 6557452-0 (Version None)
Quarter: 2010Q1

REPORT INFORMATION
  Report Type: 
  Country: None (occurrence: None)
  Receive Date: 20100129
  Receipt Date: 20100115
  Transmission Date: 20100710
  Serious: Yes (Hospitalization)
  Sender: FDA-Public Use
  Company Number: US-ELI_LILLY_AND_COMPANY-US200912005263

PATIENT
  Age: 74 Year
  Sex: Female

DRUGS (13)
  1. FORTEO [Suspect]
     Indication: OSTEOPOROSIS
     Dosage: 20 UG, DAILY (1/D)
     Dates: start: 20090901
  2. CIPRO [Concomitant]
     Dosage: 250 MG, 2/D
  3. TAMBOCOR [Concomitant]
     Dosage: 100 MG, 2/D
  4. MAGNESIUM [Concomitant]
     Dosage: 400 MG, DAILY (1/D)
  5. HYDROCHLOROTHIAZIDE [Concomitant]
     Indication: BLOOD PRESSURE
     Dosage: UNK, DAILY (1/D)
  6. LISINOPRIL [Concomitant]
     Indication: BLOOD PRESSURE
     Dosage: 5 MG, DAILY (1/D)
  7. METFORMIN [Concomitant]
     Indication: GLUCOSE TOLERANCE IMPAIRED
     Dosage: 250 MG, DAILY (1/D)
  8. VITAMIN D [Concomitant]
     Dosage: 50000 U, 2/W
  9. VITAMIN D [Concomitant]
     Dosage: 1000 U, 5/W
  10. FISH OIL [Concomitant]
     Dosage: UNK, DAILY (1/D)
  11. VITAMINS [Concomitant]
     Indication: CROHN'S DISEASE
     Route: 048
  12. CALCIUM [Concomitant]
     Indication: CROHN'S DISEASE
     Route: 048
  13. IRON [Concomitant]
     Indication: ANAEMIA

REACTIONS (5)
  - CONDUCTION DISORDER [None]
  - DRUG HYPERSENSITIVITY [None]
  - HEART RATE INCREASED [None]
  - PROCEDURAL PAIN [None]
  - SINUSITIS [None]
